FAERS Safety Report 21176446 (Version 3)
Quarter: 2024Q2

REPORT INFORMATION
  Report Type: Other
  Country: JP (occurrence: JP)
  Receive Date: 20220805
  Receipt Date: 20240509
  Transmission Date: 20240716
  Serious: Yes (Hospitalization, Other)
  Sender: FDA-Public Use
  Company Number: JP-CHUGAI-2022029680

PATIENT
  Age: 61 Year

DRUGS (3)
  1. TECENTRIQ [Suspect]
     Active Substance: ATEZOLIZUMAB
     Indication: Hepatocellular carcinoma
     Dosage: 1200 MILLIGRAM
     Route: 041
     Dates: start: 20210108, end: 20220711
  2. AVASTIN [Suspect]
     Active Substance: BEVACIZUMAB
     Indication: Hepatocellular carcinoma
     Route: 041
     Dates: start: 20210108
  3. AVASTIN [Suspect]
     Active Substance: BEVACIZUMAB
     Route: 041
     Dates: end: 20220711

REACTIONS (7)
  - Enterocolitis [Recovered/Resolved]
  - Prerenal failure [Recovered/Resolved]
  - Myocardial infarction [Recovered/Resolved]
  - Blood creatinine increased [Not Recovered/Not Resolved]
  - Diarrhoea [Unknown]
  - Proteinuria [Recovered/Resolved]
  - Dehydration [Unknown]

NARRATIVE: CASE EVENT DATE: 20210927
